FAERS Safety Report 4427355-6 (Version None)
Quarter: 2004Q3

REPORT INFORMATION
  Report Type: 
  Country: None (occurrence: None)
  Receive Date: 20040816
  Receipt Date: 20040816
  Transmission Date: 20050211
  Serious: Yes (Hospitalization)
  Sender: FDA-Public Use
  Company Number: None

PATIENT
  Age: 33 Year
  Sex: Male

DRUGS (4)
  1. SEROQUEL [Suspect]
     Indication: PSYCHOTIC DISORDER
     Dosage: 400 MG BID [SEVERAL MONTHS]
  2. DEPAKENE [Concomitant]
  3. COZAAR [Concomitant]
  4. HUMULIN [Concomitant]

REACTIONS (1)
  - PRIAPISM [None]
